FAERS Safety Report 4907423-2 (Version None)
Quarter: 2006Q1

REPORT INFORMATION
  Report Type: 
  Country: None (occurrence: None)
  Receive Date: 20060208
  Receipt Date: 20060208
  Transmission Date: 20060701
  Serious: Yes (Hospitalization)
  Sender: FDA-Public Use
  Company Number: None

PATIENT
  Age: 58 Year
  Sex: Male

DRUGS (8)
  1. FUROSEMIDE [Suspect]
     Dosage: 40 MG Q AM /20 MG Q PM
     Dates: start: 20051103
  2. LISINOPRIL [Suspect]
     Indication: HYPERTENSION
     Dosage: 40 MG QD
     Dates: start: 19990901
  3. WARFARIN SODIUM [Concomitant]
  4. NPH INSULIN [Concomitant]
  5. METOPROLOL [Concomitant]
  6. ZOCOR [Concomitant]
  7. BACLOFEN [Concomitant]
  8. SALSALATE [Concomitant]

REACTIONS (2)
  - DIZZINESS [None]
  - POLYURIA [None]
